FAERS Safety Report 21020743 (Version 3)
Quarter: 2022Q4

REPORT INFORMATION
  Report Type: Report from Study
  Country: GB (occurrence: GB)
  Receive Date: 20220629
  Receipt Date: 20221003
  Transmission Date: 20230113
  Serious: Yes (Death, Hospitalization)
  Sender: FDA-Public Use
  Company Number: GB-CELLTRION INC.-2021GB001512

PATIENT

DRUGS (10)
  1. TRASTUZUMAB [Suspect]
     Active Substance: TRASTUZUMAB
     Indication: Breast cancer
     Dosage: 567 MG (PHARMACEUTICAL DOSE FORM: SOLUTION FOR INFUSION)
     Route: 042
     Dates: start: 20160825, end: 20160825
  2. TRASTUZUMAB [Suspect]
     Active Substance: TRASTUZUMAB
     Dosage: 567 MG (PHARMACEUTICAL DOSE FORM: SOLUTION FOR INFUSION)
     Route: 042
     Dates: start: 20160825, end: 20160825
  3. TRASTUZUMAB [Suspect]
     Active Substance: TRASTUZUMAB
     Dosage: 420 MG, EVERY 3 WEEKS (PHARMACEUTICAL DOSE FORM: SOLUTION FOR INFUSION)
     Route: 042
     Dates: start: 20160915, end: 20201105
  4. TRASTUZUMAB [Suspect]
     Active Substance: TRASTUZUMAB
     Dosage: 420 MG, EVERY 3 WEEKS (PHARMACEUTICAL DOSE FORM: SOLUTION FOR INFUSION)
     Route: 042
     Dates: start: 20160915, end: 20201105
  5. DOCETAXEL [Suspect]
     Active Substance: DOCETAXEL
     Indication: Breast cancer
     Dosage: 132 MG, EVERY 3 WEEKS
     Route: 042
     Dates: start: 20160825, end: 20161027
  6. PERTUZUMAB [Suspect]
     Active Substance: PERTUZUMAB
     Indication: Breast cancer
     Dosage: 840 MG
     Route: 042
     Dates: start: 20160825, end: 20160825
  7. PERTUZUMAB [Suspect]
     Active Substance: PERTUZUMAB
     Dosage: 840 MG
     Route: 042
     Dates: start: 20160825, end: 20160825
  8. PERTUZUMAB [Suspect]
     Active Substance: PERTUZUMAB
     Dosage: 420 MG, EVERY 3 WEEKS
     Route: 042
     Dates: start: 20160915, end: 20201105
  9. PERTUZUMAB [Suspect]
     Active Substance: PERTUZUMAB
     Dosage: 420 MG, EVERY 3 WEEKS
     Route: 042
     Dates: start: 20160915, end: 20201105
  10. DEXAMETHASONE [Concomitant]
     Active Substance: DEXAMETHASONE
     Dosage: 24 MG, 1/WEEK / PHARMACEUTICAL DOSE FORM: TABLET (UNCOATED, ORAL)
     Route: 048
     Dates: start: 20160825

REACTIONS (2)
  - Muscle spasms [Fatal]
  - Death [Fatal]

NARRATIVE: CASE EVENT DATE: 20201101
